FAERS Safety Report 5191945-6 (Version None)
Quarter: 2006Q4

REPORT INFORMATION
  Report Type: 
  Country: None (occurrence: None)
  Receive Date: 20061227
  Receipt Date: 20061208
  Transmission Date: 20070319
  Serious: Yes (Death, Hospitalization)
  Sender: FDA-Public Use
  Company Number: JP-BRISTOL-MYERS SQUIBB COMPANY-13606363

PATIENT
  Age: 80 Year
  Sex: Male

DRUGS (19)
  1. QUESTRAN [Suspect]
     Indication: DRUG DETOXIFICATION
     Dates: start: 20041229, end: 20050104
  2. ARAVA [Suspect]
     Indication: RHEUMATOID ARTHRITIS
     Route: 048
     Dates: start: 20040726, end: 20041227
  3. SULFASALAZINE [Concomitant]
  4. BENET [Concomitant]
     Indication: OSTEOPOROSIS
     Route: 048
     Dates: start: 20040823
  5. VOLTAREN-XR [Concomitant]
     Indication: RHEUMATOID ARTHRITIS
     Route: 048
     Dates: start: 19970228, end: 20041227
  6. CYTOTEC [Concomitant]
     Indication: PROPHYLAXIS AGAINST GASTROINTESTINAL ULCER
     Route: 048
     Dates: start: 19990901, end: 20041227
  7. ROXATIDINE ACETATE HCL [Concomitant]
     Indication: PROPHYLAXIS AGAINST GASTROINTESTINAL ULCER
     Route: 048
     Dates: start: 20001101, end: 20041227
  8. SELECTOL [Concomitant]
     Indication: HYPERTENSION
     Route: 048
     Dates: end: 20041227
  9. ALDOMET [Concomitant]
     Indication: HYPERTENSION
     Route: 048
     Dates: end: 20041227
  10. MICARDIS [Concomitant]
     Indication: HYPERTENSION
     Route: 048
     Dates: end: 20041227
  11. ATELEC [Concomitant]
     Indication: HYPERTENSION
     Route: 048
     Dates: end: 20041227
  12. LASIX [Concomitant]
     Indication: HYPERTENSION
     Route: 048
     Dates: end: 20041227
  13. DOXAZOSIN MESYLATE [Concomitant]
     Indication: HYPERTENSION
     Route: 048
     Dates: start: 20021202, end: 20041227
  14. MAGMITT [Concomitant]
     Indication: CONSTIPATION
     Route: 048
     Dates: end: 20041227
  15. LACTOBACILLUS BIFIDUS [Concomitant]
     Indication: CONSTIPATION
     Route: 048
     Dates: end: 20041227
  16. SERMION [Concomitant]
     Indication: DIZZINESS
     Route: 048
     Dates: start: 20030513, end: 20041227
  17. PREDNISOLONE [Concomitant]
     Indication: RHEUMATOID ARTHRITIS
     Route: 048
     Dates: start: 19960517, end: 20041227
  18. VOLTAREN [Concomitant]
     Indication: RHEUMATOID ARTHRITIS
     Route: 054
     Dates: start: 19980718, end: 20041227
  19. FLUITRAN [Concomitant]
     Indication: HYPERTENSION
     Route: 048
     Dates: start: 20030926, end: 20041227

REACTIONS (2)
  - CARDIO-RESPIRATORY ARREST [None]
  - PNEUMONIA [None]
